FAERS Safety Report 12764413 (Version 1)
Quarter: 2016Q3

REPORT INFORMATION
  Report Type: Spontaneous
  Country: US (occurrence: US)
  Receive Date: 20160920
  Receipt Date: 20160920
  Transmission Date: 20161109
  Serious: No
  Sender: FDA-Public Use
  Company Number: US-ALLERGAN-1521472US

PATIENT
  Age: 75 Year
  Sex: Female
  Weight: 63.49 kg

DRUGS (4)
  1. DOXYCYCLINE. [Concomitant]
     Active Substance: DOXYCYCLINE
     Indication: EYE DISORDER
     Dosage: 1 CAPSULE, QD
     Route: 048
  2. LUMIGAN [Concomitant]
     Active Substance: BIMATOPROST
     Indication: INTRAOCULAR PRESSURE INCREASED
     Dosage: UNK
     Route: 047
  3. ACUVAIL [Suspect]
     Active Substance: KETOROLAC TROMETHAMINE
     Indication: DRY EYE
     Dosage: 2 GTT, BID
     Route: 047
     Dates: start: 20151013, end: 20151015
  4. TIMOLOL MALEATE. [Concomitant]
     Active Substance: TIMOLOL MALEATE
     Indication: PRODUCT USED FOR UNKNOWN INDICATION
     Dosage: UNK
     Route: 047

REACTIONS (3)
  - Eye pain [Not Recovered/Not Resolved]
  - Off label use [Unknown]
  - Eye irritation [Not Recovered/Not Resolved]

NARRATIVE: CASE EVENT DATE: 20151013
